FAERS Safety Report 4541857-3 (Version None)
Quarter: 2004Q4

REPORT INFORMATION
  Report Type: 
  Country: None (occurrence: None)
  Receive Date: 20041227
  Receipt Date: 20041216
  Transmission Date: 20050328
  Serious: Yes (Hospitalization)
  Sender: FDA-Public Use
  Company Number: 102862

PATIENT
  Age: 50 Year
  Sex: Female

DRUGS (7)
  1. HERCEPTIN [Suspect]
     Indication: BREAST CANCER
     Dosage: 190 MG, SINGLE, INTRAVENOUS; SEE IMAGE
     Route: 042
     Dates: start: 20020517, end: 20020517
  2. HERCEPTIN [Suspect]
     Indication: BREAST CANCER
     Dosage: 190 MG, SINGLE, INTRAVENOUS; SEE IMAGE
     Route: 042
     Dates: start: 20020531
  3. DOCETAXEL (DOCETAXEL) SOLUTION FOR INJECTION [Suspect]
     Indication: BREAST CANCER
     Dosage: 210 MG, Q3W, INTRAVENOUS
     Route: 042
     Dates: start: 20020517
  4. CIMETIDINE [Concomitant]
  5. METHYLPREDNISOLONE [Concomitant]
  6. DEXAMETHASONE [Concomitant]
  7. ALIZAPRIDE (ALIZAPRIDE HYDROCHLORIDE) [Concomitant]

REACTIONS (5)
  - ASTHENIA [None]
  - DIARRHOEA [None]
  - HAEMORRHOIDS [None]
  - MYALGIA [None]
  - PROCTALGIA [None]
